FAERS Safety Report 20004823 (Version 1)
Quarter: 2021Q4

REPORT INFORMATION
  Report Type: Spontaneous
  Country: US (occurrence: US)
  Receive Date: 20211027
  Receipt Date: 20211027
  Transmission Date: 20220303
  Serious: No
  Sender: FDA-Public Use
  Company Number: None

PATIENT
  Sex: Male

DRUGS (1)
  1. DESCOVY [Suspect]
     Active Substance: EMTRICITABINE\TENOFOVIR ALAFENAMIDE FUMARATE
     Indication: Drug therapy
     Dosage: ?          OTHER DOSE:200/25;
     Route: 048
     Dates: start: 20210916, end: 202110

REACTIONS (2)
  - Renal impairment [None]
  - Therapy cessation [None]
